FAERS Safety Report 9868372 (Version 3)
Quarter: 2014Q1

REPORT INFORMATION
  Report Type: Spontaneous
  Country: IT (occurrence: IT)
  Receive Date: 20140204
  Receipt Date: 20140326
  Transmission Date: 20141002
  Serious: Yes (Hospitalization)
  Sender: FDA-Public Use
  Company Number: IT-UCBSA-110867

PATIENT
  Age: 88 Year
  Sex: Female

DRUGS (8)
  1. GLYCERYL TRINITRATE [Suspect]
     Route: 062
     Dates: start: 20130101, end: 20131112
  2. LORAZEPAM [Suspect]
     Dates: start: 20130101, end: 20131112
  3. LISINOPRIL DIHYDRATE [Suspect]
     Dates: start: 20130101, end: 20131112
  4. FUROSEMIDE [Suspect]
     Dates: start: 20130101, end: 20131112
  5. BISOPROLOL [Suspect]
     Dates: start: 20130101, end: 20131112
  6. AMLODIPINE BESILATE [Suspect]
     Dates: start: 20130101, end: 20131112
  7. PLAVIX [Concomitant]
     Dosage: 75 MG
  8. ATORVASTATIN CALCIUM TRIHYDRATE [Concomitant]

REACTIONS (2)
  - Atrial fibrillation [Unknown]
  - Syncope [Recovering/Resolving]
